FAERS Safety Report 19158389 (Version 1)
Quarter: 2021Q2

REPORT INFORMATION
  Report Type: Spontaneous
  Country: US (occurrence: US)
  Receive Date: 20210420
  Receipt Date: 20210420
  Transmission Date: 20210717
  Serious: Yes (Hospitalization)
  Sender: FDA-Public Use
  Company Number: None

PATIENT
  Age: 50 Year
  Sex: Female
  Weight: 91.2 kg

DRUGS (2)
  1. BAMLANIVIMAB. [Suspect]
     Active Substance: BAMLANIVIMAB
     Indication: COVID-19
     Route: 042
     Dates: start: 20210416, end: 20210416
  2. ETESEVIMAB. [Suspect]
     Active Substance: ETESEVIMAB
     Indication: COVID-19
     Route: 042
     Dates: start: 20210416, end: 20210416

REACTIONS (6)
  - Infusion related reaction [None]
  - Hypersensitivity [None]
  - Urinary tract infection [None]
  - Hypoaesthesia [None]
  - Pruritus [None]
  - Abdominal pain upper [None]

NARRATIVE: CASE EVENT DATE: 20210416
